FAERS Safety Report 6178716-9 (Version None)
Quarter: 2009Q2

REPORT INFORMATION
  Report Type: 
  Country: None (occurrence: None)
  Receive Date: 20090430
  Receipt Date: 20090415
  Transmission Date: 20091009
  Serious: Yes (Death)
  Sender: FDA-Public Use
  Company Number: 2009S1006733

PATIENT
  Age: 69 Year
  Sex: Male
  Weight: 52.1637 kg

DRUGS (20)
  1. FENTANYL TRANSDERMAL SYSTEM [Suspect]
     Indication: OSTEOARTHRITIS
     Dosage: 75 UG; EVERY HOUR; TRANSDERMAL
     Route: 062
     Dates: start: 20080901, end: 20080901
  2. FENTANYL TRANSDERMAL SYSTEM [Suspect]
     Indication: PAIN
     Dosage: 75 UG; EVERY HOUR; TRANSDERMAL
     Route: 062
     Dates: start: 20080901, end: 20080901
  3. PRILOSEC (CON.) [Concomitant]
  4. CALTRATE (CON.) [Concomitant]
  5. CRANBERRY /01512301/ (CON.) [Concomitant]
  6. DILAUDID (CON.) [Concomitant]
  7. OXYCODONE (CON.) [Concomitant]
  8. LIPITOR (CON.) [Concomitant]
  9. VASOTEC /00574902/ (CON.) [Concomitant]
  10. TOPROL XL (CON.) [Concomitant]
  11. VITAMIN B12 (CON.) [Concomitant]
  12. COLACE (CON.) [Concomitant]
  13. SENNA (CON.) [Concomitant]
  14. MIRALAX (CON.) [Concomitant]
  15. ZINC (CON.) [Concomitant]
  16. VITAMIN E (CON.) [Concomitant]
  17. FOSAMAX (CON.) [Concomitant]
  18. AVODART (CON.) [Concomitant]
  19. FLOMAX (CON.) [Concomitant]
  20. AMBIEN (CON.) [Concomitant]

REACTIONS (7)
  - CARDIAC DISORDER [None]
  - DRUG INEFFECTIVE [None]
  - INCORRECT DOSE ADMINISTERED [None]
  - MULTI-ORGAN FAILURE [None]
  - RESPIRATORY ARREST [None]
  - SOMNOLENCE [None]
  - VOMITING [None]
